FAERS Safety Report 6340791-6 (Version None)
Quarter: 2009Q3

REPORT INFORMATION
  Report Type: 
  Country: None (occurrence: None)
  Receive Date: 20090904
  Receipt Date: 20090826
  Transmission Date: 20100115
  Serious: Yes (Other)
  Sender: FDA-Public Use
  Company Number: PHHY2009DE36441

PATIENT
  Sex: Female

DRUGS (1)
  1. CERTICAN [Suspect]
     Indication: TRANSPLANT
     Dosage: 3 MG, BID
     Dates: start: 20090501

REACTIONS (1)
  - OVARIAN CYST [None]
